FAERS Safety Report 7102882-1 (Version None)
Quarter: 2010Q4

REPORT INFORMATION
  Report Type: 
  Country: None (occurrence: None)
  Receive Date: 20101115
  Receipt Date: 20101102
  Transmission Date: 20110411
  Serious: Yes (Hospitalization, Other)
  Sender: FDA-Public Use
  Company Number: US-ELI_LILLY_AND_COMPANY-US201008007271

PATIENT
  Sex: Female
  Weight: 77.098 kg

DRUGS (10)
  1. FORTEO [Suspect]
     Indication: OSTEOPOROSIS
     Dosage: 20 UG, DAILY (1/D)
     Dates: start: 20100722, end: 20100919
  2. FORTEO [Suspect]
     Dosage: 20 UG, DAILY (1/D)
  3. ANTIBIOTICS [Concomitant]
  4. TORADOL [Concomitant]
     Indication: MIGRAINE
  5. GEMFIBROZIL [Concomitant]
     Dosage: 600 MG, 2/D
  6. ERGOCALCIFEROL [Concomitant]
     Dosage: 50000 U, OTHER
  7. PRAVASTATIN [Concomitant]
     Dosage: 80 MG, EACH EVENING
  8. CYPROHEPTADINE HCL [Concomitant]
     Dosage: 4 MG, 3/D
  9. ESOMEPRAZOLE [Concomitant]
     Dosage: 40 MG, DAILY (1/D)
  10. CALCIUM [Concomitant]
     Dosage: 500 MG, 2/D

REACTIONS (17)
  - ARTHRALGIA [None]
  - ASTHENIA [None]
  - BACK PAIN [None]
  - CONSTIPATION [None]
  - CONTUSION [None]
  - DEHYDRATION [None]
  - DEPRESSION [None]
  - DIARRHOEA [None]
  - FALL [None]
  - GASTROENTERITIS [None]
  - HEADACHE [None]
  - HEPATIC STEATOSIS [None]
  - HEPATITIS [None]
  - IMPAIRED HEALING [None]
  - MIGRAINE [None]
  - SCIATICA [None]
  - VOMITING [None]
